FAERS Safety Report 4427498-7 (Version None)
Quarter: 2004Q3

REPORT INFORMATION
  Report Type: 
  Country: None (occurrence: None)
  Receive Date: 20040817
  Receipt Date: 20040202
  Transmission Date: 20050211
  Serious: Yes (Hospitalization)
  Sender: FDA-Public Use
  Company Number: GB-MERCK-0402GBR00045

PATIENT
  Age: 55 Year
  Sex: Male

DRUGS (17)
  1. ACETAMINOPHEN [Suspect]
     Route: 065
     Dates: end: 20030101
  2. ALLOPURINOL [Concomitant]
     Route: 065
  3. ASPIRIN [Concomitant]
     Route: 048
  4. BISOPROLOL [Concomitant]
     Route: 065
  5. DIGOXIN [Concomitant]
     Route: 065
  6. FERROUS SULFATE [Concomitant]
     Route: 065
  7. FUROSEMIDE [Concomitant]
     Route: 065
  8. INSULIN ASPART [Concomitant]
     Route: 065
  9. INSULIN GLARGINE [Concomitant]
     Route: 065
  10. LOPERAMIDE HYDROCHLORIDE [Concomitant]
     Route: 065
  11. COZAAR [Suspect]
     Indication: HYPERTENSION
     Route: 048
     Dates: end: 20040101
  12. COZAAR [Suspect]
     Indication: PROPHYLAXIS
     Route: 048
     Dates: end: 20040101
  13. NICORANDIL [Concomitant]
     Route: 065
  14. PREDNISOLONE [Concomitant]
     Route: 065
  15. SPIRONOLACTONE [Concomitant]
     Route: 065
  16. STATIN (UNSPECIFIED) [Suspect]
     Route: 065
     Dates: end: 20030101
  17. TEMAZEPAM [Concomitant]
     Route: 065

REACTIONS (8)
  - AXILLARY VEIN THROMBOSIS [None]
  - BLOOD GLUCOSE DECREASED [None]
  - DIARRHOEA [None]
  - HENOCH-SCHONLEIN PURPURA [None]
  - INFARCTION [None]
  - LIVER FUNCTION TEST ABNORMAL [None]
  - VOMITING [None]
  - WEIGHT DECREASED [None]
